FAERS Safety Report 6263040-6 (Version None)
Quarter: 2009Q3

REPORT INFORMATION
  Report Type: 
  Country: None (occurrence: None)
  Receive Date: 20090708
  Receipt Date: 20090708
  Transmission Date: 20100115
  Serious: Yes (Life-Threatening, Hospitalization)
  Sender: FDA-Public Use
  Company Number: None

PATIENT
  Age: 52 Year
  Sex: Male
  Weight: 112.04 kg

DRUGS (1)
  1. CAPTOPRIL [Suspect]
     Indication: CARDIAC FAILURE CONGESTIVE
     Dosage: 50 MG TID PO
     Route: 048
     Dates: start: 20080409, end: 20081026

REACTIONS (3)
  - ANGIOEDEMA [None]
  - DYSPHAGIA [None]
  - RASH MACULAR [None]
